FAERS Safety Report 7328453-X (Version None)
Quarter: 2011Q1

REPORT INFORMATION
  Report Type: 
  Country: None (occurrence: None)
  Receive Date: 20110303
  Receipt Date: 20110228
  Transmission Date: 20110831
  Serious: Yes (Other)
  Sender: FDA-Public Use
  Company Number: US-PFIZER INC-2010044067

PATIENT
  Sex: Female
  Weight: 68.027 kg

DRUGS (6)
  1. GABAPENTIN [Concomitant]
     Dosage: 400 MG, 2X/DAY
  2. XANAX [Suspect]
     Indication: PANIC ATTACK
     Dosage: 0.5 MG, 2X/DAY
     Route: 048
     Dates: start: 20100101, end: 20100405
  3. XANAX [Suspect]
     Indication: INSOMNIA
     Dosage: 1 MG ONCE A DAY AT NIGHT
     Route: 048
     Dates: start: 20100301
  4. DEPAKOTE [Concomitant]
     Indication: BIPOLAR DISORDER
     Dosage: UNK
  5. ROXICODONE [Concomitant]
     Dosage: 5 MG, AS NEEDED EVERY 4-6HOURS
  6. HALCION [Suspect]
     Indication: INSOMNIA
     Dosage: 0.25 MG, DAILY
     Route: 048
     Dates: start: 20100501, end: 20101101

REACTIONS (6)
  - PANIC REACTION [None]
  - PHOTOSENSITIVITY REACTION [None]
  - DRY EYE [None]
  - INSOMNIA [None]
  - WITHDRAWAL SYNDROME [None]
  - IMPAIRED WORK ABILITY [None]
